FAERS Safety Report 5714906-4 (Version None)
Quarter: 2008Q2

REPORT INFORMATION
  Report Type: 
  Country: None (occurrence: None)
  Receive Date: 20080423
  Receipt Date: 20071005
  Transmission Date: 20081010
  Serious: Yes (Other)
  Sender: FDA-Public Use
  Company Number: US-BAYER-US-2007-038204

PATIENT

DRUGS (1)
  1. LEUKINE [Suspect]

REACTIONS (2)
  - HYPERSENSITIVITY [None]
  - SYNCOPE [None]
